FAERS Safety Report 10095938 (Version 1)
Quarter: 2014Q2

REPORT INFORMATION
  Report Type: Spontaneous
  Country: GB (occurrence: GB)
  Receive Date: 20140422
  Receipt Date: 20140422
  Transmission Date: 20141212
  Serious: Yes (Life-Threatening, Hospitalization, Other)
  Sender: FDA-Public Use
  Company Number: PHHY2014GB044495

PATIENT
  Age: 84 Year
  Sex: Female
  Weight: 63 kg

DRUGS (18)
  1. METFORMIN [Suspect]
     Dosage: 1 G, BID
  2. TRIMETHOPRIM [Suspect]
     Indication: URINARY TRACT INFECTION
     Dosage: 200 MG, BID [ACUTE COURSE]
     Route: 048
     Dates: start: 20140306, end: 20140312
  3. RAMIPRIL [Suspect]
     Indication: ANGIOPATHY
     Dosage: 5 MG, BID [FOR RENOVASCULAR DISEASE]
     Route: 048
     Dates: end: 20140312
  4. GLICLAZIDE [Suspect]
     Indication: TYPE 2 DIABETES MELLITUS
     Dosage: 80 MG, BID [REDUCED TO 80MG ONCE A DAY WHILE IN HOSPITAL]
     Route: 048
  5. CALCICHEW D3 FORTE [Suspect]
     Indication: OSTEOPOROSIS
     Route: 048
     Dates: end: 20140312
  6. ALENDRONIC ACID [Concomitant]
     Dosage: 70 MG, QW
  7. ALVERINE CITRATE [Concomitant]
     Dosage: 120 MG, TID
  8. ASPIRIN [Concomitant]
     Dosage: 75 MG, QD
  9. BRINZOLAMIDE [Concomitant]
  10. FERROUS FUMARATE [Concomitant]
     Dosage: 210 MG, QD
     Dates: start: 20140221
  11. GAVISCON ADVANCE [Concomitant]
     Dosage: 10 ML, UNK
     Dates: start: 20140310
  12. LAXIDO                             /06401201/ [Concomitant]
  13. METOCLOPRAMIDE [Concomitant]
     Dosage: 10 MG, TID [AS NECESSARY]
     Dates: start: 20140310
  14. PIOGLITAZONE HYDROCHLORIDE [Concomitant]
     Dosage: 15 MG, BID
  15. QUININE SULPHATE [Concomitant]
     Dosage: 300 MG, AT NIGHT
  16. SALBUTAMOL [Concomitant]
     Route: 055
  17. SIMVASTATIN [Concomitant]
     Dosage: 40 MG, QD [AT NIGHT]
  18. ZAPAIN [Concomitant]
     Dosage: 1-2 FOUR TIMES A DAY AS NECESARY

REACTIONS (6)
  - Renal failure acute [Recovered/Resolved]
  - Hypoglycaemia [Recovered/Resolved]
  - Hypercalcaemia [Recovered/Resolved]
  - Abdominal pain lower [Unknown]
  - Hyperkalaemia [Recovered/Resolved]
  - Nausea [Unknown]
